FAERS Safety Report 26205968 (Version 1)
Quarter: 2025Q4

REPORT INFORMATION
  Report Type: Spontaneous
  Country: CN (occurrence: CN)
  Receive Date: 20251229
  Receipt Date: 20251229
  Transmission Date: 20260118
  Serious: Yes (Hospitalization, Other)
  Sender: DECIPHERA PHARMACEUTICALS
  Company Number: CN-ZAILAB-ZAI202503452

PATIENT
  Age: 55 Year
  Sex: Male
  Weight: 55 kg

DRUGS (3)
  1. QINLOCK [Suspect]
     Active Substance: RIPRETINIB
     Indication: Gastrointestinal stromal tumour
     Dosage: 150 MG, QD
     Route: 061
     Dates: start: 20251208, end: 20251210
  2. QINLOCK [Suspect]
     Active Substance: RIPRETINIB
     Indication: Metastases to liver
  3. CELECOXIB [Suspect]
     Active Substance: CELECOXIB
     Indication: Abdominal pain
     Dosage: 200 MG, BID
     Route: 061
     Dates: start: 20251108, end: 20251210

REACTIONS (2)
  - Gastrointestinal haemorrhage [Not Recovered/Not Resolved]
  - Abdominal pain [Not Recovered/Not Resolved]

NARRATIVE: CASE EVENT DATE: 20251210
